FAERS Safety Report 23630311 (Version 1)
Quarter: 2024Q1

REPORT INFORMATION
  Report Type: Report from Study
  Country: US (occurrence: US)
  Receive Date: 20240314
  Receipt Date: 20240314
  Transmission Date: 20240410
  Serious: Yes (Other)
  Sender: FDA-Public Use
  Company Number: US-ABBVIE-5676159

PATIENT
  Age: 82 Year
  Sex: Male

DRUGS (1)
  1. IMBRUVICA [Suspect]
     Active Substance: IBRUTINIB
     Indication: Waldenstrom^s macroglobulinaemia
     Route: 048
     Dates: end: 20240306

REACTIONS (10)
  - Melanocytic naevus [Unknown]
  - Blood iron decreased [Unknown]
  - Haemoglobin decreased [Unknown]
  - Red blood cell count decreased [Unknown]
  - Haematocrit decreased [Unknown]
  - Pneumonia [Recovered/Resolved]
  - Gait disturbance [Unknown]
  - Asthenia [Unknown]
  - Dizziness [Not Recovered/Not Resolved]
  - Serum ferritin increased [Unknown]

NARRATIVE: CASE EVENT DATE: 20240101
